FAERS Safety Report 21418186 (Version 1)
Quarter: 2022Q4

REPORT INFORMATION
  Report Type: Spontaneous
  Country: NO (occurrence: NO)
  Receive Date: 20221006
  Receipt Date: 20221006
  Transmission Date: 20230113
  Serious: Yes (Other)
  Sender: FDA-Public Use
  Company Number: NO-NALPROPION PHARMACEUTICALS INC.-NO-2022CUR023103

PATIENT
  Age: 38 Year
  Sex: Female

DRUGS (2)
  1. BUPROPION HYDROCHLORIDE\NALTREXONE HYDROCHLORIDE [Suspect]
     Active Substance: BUPROPION HYDROCHLORIDE\NALTREXONE HYDROCHLORIDE
     Indication: Overweight
     Dosage: STRENGTH: 8/90 MG, UNKNOWN DOSE AND FREQUENCY
     Route: 065
     Dates: start: 20210125, end: 20210223
  2. CHOLECALCIFEROL [Concomitant]
     Active Substance: CHOLECALCIFEROL
     Indication: Product used for unknown indication
     Dosage: UNK

REACTIONS (3)
  - Suicidal ideation [Recovered/Resolved]
  - Anxiety [Recovered/Resolved]
  - Depression [Unknown]

NARRATIVE: CASE EVENT DATE: 20210201
